FAERS Safety Report 14691061 (Version 1)
Quarter: 2018Q1

REPORT INFORMATION
  Report Type: Spontaneous
  Country: US (occurrence: US)
  Receive Date: 20180327
  Receipt Date: 20180327
  Transmission Date: 20180509
  Serious: Yes (Other)
  Sender: FDA-Public Use
  Company Number: None

PATIENT
  Sex: Male

DRUGS (1)
  1. BETHKIS [Suspect]
     Active Substance: TOBRAMYCIN
     Dosage: 4 ML BID NEBULIZED
     Dates: start: 20180205

REACTIONS (3)
  - Rash [None]
  - Wheezing [None]
  - Therapy cessation [None]
